FAERS Safety Report 4768955-3 (Version None)
Quarter: 2005Q3

REPORT INFORMATION
  Report Type: 
  Country: None (occurrence: None)
  Receive Date: 20050913
  Receipt Date: 20050906
  Transmission Date: 20060218
  Serious: Yes (Death)
  Sender: FDA-Public Use
  Company Number: 2005-SW-00386DB

PATIENT
  Age: 78 Year
  Sex: Female
  Weight: 85 kg

DRUGS (6)
  1. SPIRIVA [Suspect]
     Indication: CHRONIC OBSTRUCTIVE PULMONARY DISEASE
     Dosage: SEE TEXT (SEE TEXT, 1 IN 24 HR), IH
     Route: 055
     Dates: start: 20030414, end: 20050808
  2. PLACEBO (BLIND) [Suspect]
     Indication: CHRONIC OBSTRUCTIVE PULMONARY DISEASE
     Dosage: SEE TEXT (SEE TEXT, 1 IN 24 HR), IH
     Route: 055
     Dates: start: 20030414, end: 20050808
  3. MAGNYL (ACETYLSALICYLIC ACID) [Suspect]
     Indication: THROMBOSIS PROPHYLAXIS
     Dosage: 75 MG (75 MG,), PO
     Route: 048
     Dates: start: 20000323, end: 20050808
  4. PREDNISONE [Suspect]
     Indication: CHRONIC OBSTRUCTIVE PULMONARY DISEASE
     Dosage: 37.5 MG (37.5 MG,), PO
     Route: 048
     Dates: start: 20050724, end: 20050808
  5. COZAAR [Concomitant]
  6. SERETIDE (GALENIC/FLUTICASONE/SALMETEROL/) [Concomitant]

REACTIONS (2)
  - BLEEDING VARICOSE VEIN [None]
  - SHOCK HAEMORRHAGIC [None]
